FAERS Safety Report 16986855 (Version 1)
Quarter: 2019Q4

REPORT INFORMATION
  Report Type: Report from Study
  Country: US (occurrence: US)
  Receive Date: 20191104
  Receipt Date: 20191104
  Transmission Date: 20200122
  Serious: Yes (Other)
  Sender: FDA-Public Use
  Company Number: US-BEH-2019108900

PATIENT
  Age: 65 Year
  Sex: Male
  Weight: 79.37 kg

DRUGS (2)
  1. HAEGARDA [Suspect]
     Active Substance: HUMAN C1-ESTERASE INHIBITOR
     Dosage: 3000 INTERNATIONAL UNIT, BIW
     Route: 058
  2. HAEGARDA [Suspect]
     Active Substance: HUMAN C1-ESTERASE INHIBITOR
     Indication: HEREDITARY ANGIOEDEMA
     Dosage: 4380 INTERNATIONAL UNIT, BIW
     Route: 058
     Dates: start: 20190729

REACTIONS (2)
  - Hereditary angioedema [Unknown]
  - Product dispensing error [Unknown]

NARRATIVE: CASE EVENT DATE: 20191028
